FAERS Safety Report 10003644 (Version 1)
Quarter: 2014Q1

REPORT INFORMATION
  Report Type: Spontaneous
  Country: ZA (occurrence: ZA)
  Receive Date: 20140312
  Receipt Date: 20140312
  Transmission Date: 20141002
  Serious: Yes (Death)
  Sender: FDA-Public Use
  Company Number: PHHY2014ZA030343

PATIENT
  Sex: 0

DRUGS (2)
  1. SIMULECT [Suspect]
     Indication: TRANSPLANT REJECTION
     Dosage: UNK UKN, UNK
  2. SIMULECT [Suspect]
     Indication: OFF LABEL USE

REACTIONS (1)
  - Death [Fatal]
